FAERS Safety Report 5860804-5 (Version None)
Quarter: 2008Q3

REPORT INFORMATION
  Report Type: 
  Country: None (occurrence: None)
  Receive Date: 20080827
  Receipt Date: 20071128
  Transmission Date: 20090109
  Serious: No
  Sender: FDA-Public Use
  Company Number: US-ABBOTT-07P-163-0426593-00

PATIENT
  Sex: Male
  Weight: 83.99 kg

DRUGS (4)
  1. NIASPAN [Suspect]
     Indication: FAMILIAL RISK FACTOR
     Route: 048
     Dates: start: 20070901
  2. NIASPAN [Suspect]
     Route: 048
     Dates: start: 20040101, end: 20070901
  3. ACETYLSALICYLIC ACID SRT [Concomitant]
     Indication: CARDIOVASCULAR EVENT PROPHYLAXIS
     Route: 048
  4. SERENOA REPENS [Concomitant]
     Indication: PHYTOTHERAPY
     Route: 048

REACTIONS (2)
  - ASPARTATE AMINOTRANSFERASE INCREASED [None]
  - BLOOD BILIRUBIN INCREASED [None]
